FAERS Safety Report 8916175 (Version 1)
Quarter: 2012Q4

REPORT INFORMATION
  Report Type: 
  Country: GB (occurrence: GB)
  Receive Date: 20121120
  Receipt Date: 20121120
  Transmission Date: 20130627
  Serious: Yes (Other)
  Sender: FDA-Public Use
  Company Number: GB-ELI_LILLY_AND_COMPANY-GB201211001476

PATIENT
  Age: 60 Year
  Sex: Female

DRUGS (9)
  1. YENTREVE [Suspect]
     Dosage: 20 mg, qd
     Route: 048
     Dates: start: 20121018, end: 20121018
  2. DOSULEPIN [Concomitant]
     Dosage: 75 mg, UNK
  3. FOLIC ACID [Concomitant]
     Dosage: 5 mg, UNK
  4. LEVOTHYROXINE [Concomitant]
     Dosage: 50 ug, UNK
  5. LISINOPRIL [Concomitant]
     Dosage: 5 mg, UNK
  6. MELOXICAM [Concomitant]
     Dosage: 15 mg, UNK
  7. METHOTREXATE [Concomitant]
     Dosage: 2.5 mg, UNK
  8. OMEPRAZOLE [Concomitant]
     Dosage: 20 mg, UNK
  9. ROSUVASTATIN [Concomitant]
     Dosage: 5 mg, UNK

REACTIONS (5)
  - Lip swelling [Recovering/Resolving]
  - Gingival bleeding [Recovering/Resolving]
  - Nervousness [Recovering/Resolving]
  - Insomnia [Recovering/Resolving]
  - Bruxism [Recovering/Resolving]
